FAERS Safety Report 6558774-X (Version None)
Quarter: 2010Q1

REPORT INFORMATION
  Report Type: 
  Country: None (occurrence: None)
  Receive Date: 20100129
  Receipt Date: 20100126
  Transmission Date: 20100710
  Serious: Yes (Other)
  Sender: FDA-Public Use
  Company Number: FR-WYE-G04793909

PATIENT
  Sex: Male
  Weight: 72 kg

DRUGS (7)
  1. TORISEL [Suspect]
     Indication: RENAL CANCER METASTATIC
     Dosage: 1 INJECTION OF 25 MG
     Route: 042
     Dates: start: 20091026, end: 20091026
  2. COVERSYL [Concomitant]
     Dosage: 1 DOSE (FREQUENCY UNKNOWN)
     Route: 048
  3. EFFERALGAN [Concomitant]
     Dosage: 3 DOSES (FREQUENCY UNKNOWN)
     Route: 048
  4. BISOPROLOL FUMARATE [Concomitant]
     Dosage: HALF A DOSE (FREQUENCY UNKNOWN)
     Route: 048
  5. FUROSEMIDE [Concomitant]
     Dosage: 20 MG (FREQUENCY UNKNOWN)
     Route: 048
  6. PREVISCAN [Concomitant]
     Dosage: HALF A DOSE (FREQUENCY UNKNOWN)
     Route: 048
     Dates: start: 19920101
  7. VASTAREL [Concomitant]
     Dosage: 70 MG (FREQUENCY UNKNOWN)
     Route: 048

REACTIONS (1)
  - PLATELET COUNT DECREASED [None]
